FAERS Safety Report 13721616 (Version 1)
Quarter: 2017Q3

REPORT INFORMATION
  Report Type: Spontaneous
  Country: US (occurrence: US)
  Receive Date: 20170706
  Receipt Date: 20170706
  Transmission Date: 20171127
  Serious: Yes (Other)
  Sender: FDA-Public Use
  Company Number: None

PATIENT
  Age: 62 Year
  Sex: Female
  Weight: 108.96 kg

DRUGS (2)
  1. WARFARIN 7.5MG UNKNOWN [Suspect]
     Active Substance: WARFARIN
     Indication: IMMOBILE
     Route: 048
  2. WARFARIN 7.5MG UNKNOWN [Suspect]
     Active Substance: WARFARIN
     Indication: MULTIPLE SCLEROSIS
     Route: 048

REACTIONS (1)
  - International normalised ratio fluctuation [None]

NARRATIVE: CASE EVENT DATE: 20170529
